FAERS Safety Report 6891024-3 (Version None)
Quarter: 2010Q3

REPORT INFORMATION
  Report Type: 
  Country: None (occurrence: None)
  Receive Date: 20100731
  Receipt Date: 20090506
  Transmission Date: 20110219
  Serious: Yes (Other)
  Sender: FDA-Public Use
  Company Number: US-PFIZER INC-2006089642

PATIENT
  Sex: Male

DRUGS (1)
  1. LIPITOR [Suspect]
     Dosage: 20 MG, 1X/DAY
     Dates: start: 20050419, end: 20060101

REACTIONS (6)
  - AMNESIA [None]
  - CONFUSIONAL STATE [None]
  - DEPRESSION [None]
  - FATIGUE [None]
  - IRRITABILITY [None]
  - NEUROPATHY PERIPHERAL [None]
